FAERS Safety Report 9197553 (Version 1)
Quarter: 2013Q1

REPORT INFORMATION
  Report Type: Spontaneous
  Country: FI (occurrence: FI)
  Receive Date: 20130328
  Receipt Date: 20130328
  Transmission Date: 20140127
  Serious: Yes (Other)
  Sender: FDA-Public Use
  Company Number: FI-PFIZER INC-2013097410

PATIENT
  Age: 60 Year
  Sex: Male

DRUGS (2)
  1. SUTENT [Suspect]
     Indication: RENAL CANCER
     Dosage: 37.5 MG, THE FIRST CYCLE
  2. SUTENT [Suspect]
     Dosage: 50 MG, UNK

REACTIONS (3)
  - Renal failure [Unknown]
  - Paralysis [Unknown]
  - Thrombocytopenia [Unknown]
